FAERS Safety Report 18561771 (Version 1)
Quarter: 2020Q4

REPORT INFORMATION
  Report Type: Spontaneous
  Country: US (occurrence: US)
  Receive Date: 20201130
  Receipt Date: 20201130
  Transmission Date: 20210114
  Serious: No
  Sender: FDA-Public Use
  Company Number: US-ROCHE-2649428

PATIENT
  Sex: Female

DRUGS (7)
  1. TUCATINIB [Suspect]
     Active Substance: TUCATINIB
     Dosage: HOLD FOR 1 WEEK
     Route: 065
     Dates: start: 20200716, end: 20200717
  2. DEXAMETHASONE. [Concomitant]
     Active Substance: DEXAMETHASONE
  3. TUCATINIB [Suspect]
     Active Substance: TUCATINIB
     Dosage: ONGOING : YES
     Route: 065
     Dates: start: 20200723
  4. TUCATINIB [Suspect]
     Active Substance: TUCATINIB
     Dosage: FOR 3 DAYS
     Route: 065
  5. HERCEPTIN [Suspect]
     Active Substance: TRASTUZUMAB
     Indication: BREAST CANCER
     Dosage: ONGOING : HOLD FOR 1 WEEK
     Route: 065
     Dates: start: 20200716, end: 20200717
  6. HERCEPTIN [Suspect]
     Active Substance: TRASTUZUMAB
     Dosage: ONGOING : YES
     Route: 065
     Dates: start: 20200723
  7. TUCATINIB [Suspect]
     Active Substance: TUCATINIB
     Indication: BREAST CANCER FEMALE
     Dosage: WITH FOOD
     Route: 065
     Dates: start: 20200710

REACTIONS (19)
  - Epistaxis [Unknown]
  - Swelling face [Unknown]
  - Blister [Unknown]
  - Cough [Unknown]
  - Pruritus [Recovered/Resolved]
  - Diarrhoea [Recovered/Resolved]
  - Urticaria [Recovered/Resolved]
  - Mouth ulceration [Unknown]
  - Gait disturbance [Unknown]
  - Peripheral swelling [Unknown]
  - Blood albumin decreased [Unknown]
  - Constipation [Unknown]
  - Fatigue [Unknown]
  - Abdominal distension [Unknown]
  - Blood pressure increased [Recovering/Resolving]
  - Taste disorder [Unknown]
  - Dry skin [Unknown]
  - Alopecia [Unknown]
  - Memory impairment [Unknown]
